FAERS Safety Report 19337022 (Version 4)
Quarter: 2021Q3

REPORT INFORMATION
  Report Type: Report from Study
  Country: CN (occurrence: CN)
  Receive Date: 20210530
  Receipt Date: 20210810
  Transmission Date: 20211014
  Serious: Yes (Death, Hospitalization)
  Sender: FDA-Public Use
  Company Number: CN-KARYOPHARM-2021KPT000716

PATIENT
  Age: 52 Year
  Sex: Male

DRUGS (4)
  1. SELINEXOR [Suspect]
     Active Substance: SELINEXOR
     Indication: T-CELL LYMPHOMA
     Dosage: 60 MG (60 MG, 1 IN 1 D)
     Route: 048
     Dates: start: 20210507, end: 20210507
  2. IFOSFAMIDE. [Suspect]
     Active Substance: IFOSFAMIDE
     Indication: T-CELL LYMPHOMA
     Dosage: 3 G (3 GM,1 IN 1 D)
     Route: 042
     Dates: start: 20210507, end: 20210508
  3. ETOPOSIDE. [Suspect]
     Active Substance: ETOPOSIDE
     Indication: T-CELL LYMPHOMA
     Dosage: 200 MG (200 MG,1 IN 1 D)
     Route: 042
     Dates: start: 20210507, end: 20210508
  4. CARBOPLATIN. [Suspect]
     Active Substance: CARBOPLATIN
     Indication: T-CELL LYMPHOMA
     Dosage: 500 UG (500 MCG,1 IN 1 D)
     Route: 042
     Dates: start: 20210508, end: 20210508

REACTIONS (2)
  - Septic shock [Fatal]
  - Febrile neutropenia [Not Recovered/Not Resolved]

NARRATIVE: CASE EVENT DATE: 20210515
